FAERS Safety Report 17499117 (Version 1)
Quarter: 2020Q1

REPORT INFORMATION
  Report Type: Spontaneous
  Country: JP (occurrence: JP)
  Receive Date: 20200305
  Receipt Date: 20200305
  Transmission Date: 20200409
  Serious: Yes (Other)
  Sender: FDA-Public Use
  Company Number: JP-REGENERON PHARMACEUTICALS, INC.-2019-55738

PATIENT

DRUGS (9)
  1. EYLEA [Suspect]
     Active Substance: AFLIBERCEPT
     Dosage: 2 MG, ONCE(RIGHT EYE)
     Route: 031
     Dates: start: 20190905, end: 20190905
  2. EYLEA [Suspect]
     Active Substance: AFLIBERCEPT
     Dosage: 2 MG, ONCE(RIGHT EYE)
     Route: 031
     Dates: start: 201810, end: 201810
  3. EYLEA [Suspect]
     Active Substance: AFLIBERCEPT
     Dosage: 2 MG, ONCE(RIGHT EYE)
     Route: 031
     Dates: start: 20190325, end: 20190325
  4. EYLEA [Suspect]
     Active Substance: AFLIBERCEPT
     Dosage: 2 MG, ONCE(RIGHT EYE)
     Route: 031
     Dates: start: 20190624, end: 20190624
  5. EYLEA [Suspect]
     Active Substance: AFLIBERCEPT
     Indication: CHOROIDAL NEOVASCULARISATION
     Dosage: 2 MG, ONCE(RIGHT EYE)
     Route: 031
     Dates: start: 20171025, end: 20171025
  6. EYLEA [Suspect]
     Active Substance: AFLIBERCEPT
     Dosage: 2 MG, ONCE(RIGHT EYE)
     Route: 031
     Dates: start: 20190128, end: 20190128
  7. EYLEA [Suspect]
     Active Substance: AFLIBERCEPT
     Indication: AGE-RELATED MACULAR DEGENERATION
     Dosage: 2 MG, ONCE(RIGHT EYE)
     Route: 031
     Dates: start: 20170802
  8. EYLEA [Suspect]
     Active Substance: AFLIBERCEPT
     Dosage: 2 MG, ONCE(RIGHT EYE)
     Route: 031
     Dates: start: 201805, end: 201805
  9. TRIAMCINOLONE [Suspect]
     Active Substance: TRIAMCINOLONE
     Indication: PRODUCT USED FOR UNKNOWN INDICATION

REACTIONS (2)
  - Serous retinal detachment [Recovered/Resolved]
  - Subretinal fluid [Recovered/Resolved]

NARRATIVE: CASE EVENT DATE: 20190221
